FAERS Safety Report 7588326-4 (Version None)
Quarter: 2011Q3

REPORT INFORMATION
  Report Type: 
  Country: None (occurrence: None)
  Receive Date: 20110705
  Receipt Date: 20090930
  Transmission Date: 20111222
  Serious: Yes (Death, Hospitalization, Other)
  Sender: FDA-Public Use
  Company Number: US-BAYER-200934730NA

PATIENT
  Age: 67 Year
  Sex: Male
  Weight: 136 kg

DRUGS (38)
  1. TRASYLOL [Suspect]
     Dosage: 200 ML ON PUMP
     Dates: start: 20070729, end: 20070729
  2. WARFARIN SODIUM [Concomitant]
     Dosage: 7.5 MG, HS, LONG TERM USE
     Route: 048
  3. ANCEF [Concomitant]
     Indication: PREOPERATIVE CARE
     Dosage: 1 G, ONCE
     Route: 042
     Dates: start: 20070729, end: 20070729
  4. ALLOPURINOL [Concomitant]
     Dosage: 100 MG, QD, LONG TERM USE
     Route: 048
  5. VERSED [Concomitant]
     Indication: CORONARY ARTERIAL STENT INSERTION
     Dosage: 2 MG, UNK
     Route: 042
     Dates: start: 20070722, end: 20070722
  6. VERSED [Concomitant]
     Dosage: UNK
     Route: 042
     Dates: start: 20070729, end: 20070729
  7. ENALAPRIL MALEATE [Concomitant]
     Dosage: 20 MG, BID, LONG TERM USE
     Route: 048
  8. BIVALIRUDIN [Concomitant]
     Indication: CORONARY ARTERIAL STENT INSERTION
     Dosage: 1MG TO 0.750MG/KG/HR
     Route: 042
     Dates: start: 20070722, end: 20070722
  9. FUROSEMIDE [Concomitant]
     Dosage: 40 MG, QD IN THE AM, LONG TERM USE
     Route: 048
  10. LABETALOL HCL [Concomitant]
     Indication: PREOPERATIVE CARE
     Dosage: 10 MG, ONCE
     Route: 042
     Dates: start: 20070729, end: 20070729
  11. PROTAMINE SULFATE [Concomitant]
     Dosage: UNK
     Route: 042
     Dates: start: 20070729, end: 20070729
  12. EPINEPHRINE [Concomitant]
     Dosage: TITRATED
     Route: 042
     Dates: start: 20070729, end: 20070729
  13. METOPROLOL TARTRATE [Concomitant]
     Indication: CORONARY ARTERIAL STENT INSERTION
     Dosage: 25 MG, UNK
     Route: 048
     Dates: start: 20070722, end: 20070722
  14. FENTANYL [Concomitant]
     Dosage: 20 MCG
     Route: 042
     Dates: start: 20070729, end: 20070729
  15. VITAMIN K TAB [Concomitant]
     Indication: CORONARY ARTERIAL STENT INSERTION
     Dosage: 5 MG, UNK
     Route: 058
     Dates: start: 20070722, end: 20070722
  16. MORPHINE SULFATE [Concomitant]
     Indication: CORONARY ARTERIAL STENT INSERTION
     Dosage: VARIABLE DOSING
     Route: 042
     Dates: start: 20070723, end: 20070723
  17. XANAX [Concomitant]
     Indication: CORONARY ARTERIAL STENT INSERTION
     Dosage: 0.25 MG, UNK
     Route: 048
     Dates: start: 20070723, end: 20070723
  18. LORTAB [Concomitant]
     Indication: CORONARY ARTERIAL STENT INSERTION
     Dosage: 5-500 MG
     Route: 048
     Dates: start: 20070723, end: 20070723
  19. COREG [Concomitant]
     Dosage: 25 MG, BID
     Route: 048
  20. ANCEF [Concomitant]
     Dosage: 2G
     Route: 042
     Dates: start: 20070729, end: 20070729
  21. NOREPINEPHRINE BITARTRATE [Concomitant]
     Dosage: TITRATED
     Route: 042
     Dates: start: 20070729, end: 20070729
  22. TRASYLOL [Suspect]
     Dosage: 50 ML/H INFUSION
     Route: 042
     Dates: start: 20070729, end: 20070729
  23. ACETYLSALICYLIC ACID SRT [Concomitant]
     Indication: CORONARY ARTERIAL STENT INSERTION
     Dosage: 325 MG, UNK
     Route: 048
     Dates: start: 20070722, end: 20070722
  24. FENTANYL [Concomitant]
     Indication: CORONARY ARTERIAL STENT INSERTION
     Dosage: 50 MCG
     Route: 042
     Dates: start: 20070722, end: 20070722
  25. SPIRONOLACTONE [Concomitant]
     Dosage: 25 MG, QD
     Route: 048
  26. PROTONIX [Concomitant]
     Dosage: 40 MG, QD
  27. HEPARIN [Concomitant]
     Dosage: 5000U PUMP
     Route: 042
     Dates: start: 20070729, end: 20070729
  28. TRASYLOL [Suspect]
     Indication: AORTIC VALVE REPAIR
     Dosage: 200 ML, ONCE, LOADING DOSE
     Route: 042
     Dates: start: 20070729, end: 20070729
  29. SIMVASTATIN [Concomitant]
     Dosage: 40 MG, HS, LONG TERM USE
     Route: 048
  30. METOPROLOL TARTRATE [Concomitant]
     Dosage: 10 MG, UNK
     Route: 042
     Dates: start: 20070722, end: 20070722
  31. ACETYLSALICYLIC ACID SRT [Concomitant]
     Dosage: 81 MG, UNK
     Route: 048
     Dates: end: 20070723
  32. ESMOLOL [Concomitant]
     Dosage: 50MCG/KG/MIN DRIP
     Route: 042
     Dates: start: 20070729
  33. METOPROLOL TARTRATE [Concomitant]
     Indication: PREOPERATIVE CARE
     Dosage: 5 MG, ONCE
     Route: 042
     Dates: start: 20070729, end: 20070729
  34. PLAVIX [Concomitant]
     Dosage: 75 MG, QD
     Route: 048
  35. ESMOLOL [Concomitant]
     Indication: PREOPERATIVE CARE
     Dosage: 50 MCG/MIN DRIP
     Route: 042
     Dates: start: 20070729
  36. FRESH FROZEN PLASMA [Concomitant]
     Dosage: 2 U, ONCE
     Route: 042
     Dates: start: 20070729
  37. PROPOFOL [Concomitant]
     Dosage: TITRATED
     Route: 042
     Dates: start: 20070729
  38. HEPARIN [Concomitant]
     Dosage: 55000 U, UNK, PUMP
     Route: 042
     Dates: start: 20070729, end: 20070729

REACTIONS (10)
  - FEAR [None]
  - ANHEDONIA [None]
  - INJURY [None]
  - ANXIETY [None]
  - RENAL FAILURE [None]
  - PAIN [None]
  - UNEVALUABLE EVENT [None]
  - DEATH [None]
  - CEREBROVASCULAR ACCIDENT [None]
  - DEPRESSION [None]
